FAERS Safety Report 5336529-1 (Version None)
Quarter: 2007Q2

REPORT INFORMATION
  Report Type: 
  Country: None (occurrence: None)
  Receive Date: 20070529
  Receipt Date: 20070523
  Transmission Date: 20071010
  Serious: Yes (Hospitalization)
  Sender: FDA-Public Use
  Company Number: NL-BAYER-200712098GDS

PATIENT
  Age: 75 Year
  Sex: Male

DRUGS (9)
  1. AVELOX [Suspect]
     Indication: RESPIRATORY TRACT INFECTION
     Dosage: TOTAL DAILY DOSE: 400 MG  UNIT DOSE: 400 MG
     Route: 048
     Dates: start: 20070328, end: 20070401
  2. METOPROLOL SUCCINATE [Concomitant]
     Indication: MYOCARDIAL INFARCTION
     Dosage: TOTAL DAILY DOSE: 50 MG
     Route: 048
     Dates: start: 20070326
  3. PERINDOPRIL ERBUMINE [Concomitant]
     Indication: MYOCARDIAL INFARCTION
     Dosage: AS USED: 4 MG
     Route: 048
     Dates: start: 20070326
  4. NITROGLYCERIN [Concomitant]
     Indication: MYOCARDIAL INFARCTION
     Route: 060
     Dates: start: 20070326
  5. LIPITOR [Concomitant]
     Indication: MYOCARDIAL INFARCTION
     Dosage: TOTAL DAILY DOSE: 10 MG
     Route: 065
     Dates: start: 20070326
  6. PLAVIX [Concomitant]
     Indication: MYOCARDIAL INFARCTION
     Dosage: TOTAL DAILY DOSE: 75 MG
     Route: 065
     Dates: start: 20070326
  7. NEXIUM [Concomitant]
     Indication: MYOCARDIAL INFARCTION
     Dosage: TOTAL DAILY DOSE: 40 MG
     Route: 065
     Dates: start: 20070326
  8. ASCAL [Concomitant]
     Indication: MYOCARDIAL INFARCTION
     Dosage: TOTAL DAILY DOSE: 100 MG
     Route: 065
     Dates: start: 20070326
  9. TOPAMAX [Concomitant]
     Indication: MYOCARDIAL INFARCTION
     Dosage: TOTAL DAILY DOSE: 100 MG
     Route: 065
     Dates: start: 20070326

REACTIONS (1)
  - MYOCARDIAL INFARCTION [None]
